FAERS Safety Report 4569470-2 (Version None)
Quarter: 2005Q1

REPORT INFORMATION
  Report Type: 
  Country: None (occurrence: None)
  Receive Date: 20050201
  Receipt Date: 20050114
  Transmission Date: 20050727
  Serious: Yes (Hospitalization)
  Sender: FDA-Public Use
  Company Number: CEL-2005-00078-ROC

PATIENT
  Age: 19 Year
  Sex: Female

DRUGS (1)
  1. IONAMIN [Suspect]
     Indication: WEIGHT CONTROL
     Dosage: 15MG DAILY PO INCREASED TO 30MG DAILY PO
     Route: 048
     Dates: start: 20040924, end: 20050115

REACTIONS (13)
  - ABNORMAL BEHAVIOUR [None]
  - ANXIETY [None]
  - DELUSION [None]
  - DIFFICULTY IN WALKING [None]
  - HALLUCINATION, TACTILE [None]
  - HALLUCINATION, VISUAL [None]
  - HOSTILITY [None]
  - INCOHERENT [None]
  - PARANOIA [None]
  - PSYCHOTIC DISORDER [None]
  - SUSPICIOUSNESS [None]
  - URINARY TRACT INFECTION [None]
  - WEIGHT DECREASED [None]
